FAERS Safety Report 9261654 (Version 1)
Quarter: 2013Q2

REPORT INFORMATION
  Report Type: Spontaneous
  Country: US (occurrence: US)
  Receive Date: 20130429
  Receipt Date: 20130429
  Transmission Date: 20140414
  Serious: No
  Sender: FDA-Public Use
  Company Number: US-B.I. PHARMACEUTICALS,INC./RIDGEFIELD-2013-BI-10744BP

PATIENT
  Age: 49 Year
  Sex: Male

DRUGS (3)
  1. SPIRIVA [Suspect]
     Indication: ASTHMA
     Dosage: 18 MCG
     Route: 055
  2. SINGULAIR [Concomitant]
     Route: 048
  3. PROAIR [Concomitant]
     Route: 055

REACTIONS (2)
  - Wheezing [Not Recovered/Not Resolved]
  - Product quality issue [Recovered/Resolved]
